FAERS Safety Report 4405984-3 (Version None)
Quarter: 2004Q3

REPORT INFORMATION
  Report Type: 
  Country: None (occurrence: None)
  Receive Date: 20040723
  Receipt Date: 20040302
  Transmission Date: 20050211
  Serious: No
  Sender: FDA-Public Use
  Company Number: US-GLAXOSMITHKLINE-A0500722A

PATIENT
  Age: 60 Year
  Sex: Male

DRUGS (8)
  1. AVANDIA [Suspect]
     Dosage: 4MG TWICE PER DAY
     Route: 048
  2. METFORMIN HCL [Concomitant]
  3. LOPRESSOR [Concomitant]
  4. ASPIRIN [Concomitant]
  5. DIOVAN [Concomitant]
  6. TRICOR [Concomitant]
  7. ZOLOFT [Concomitant]
  8. PRAVACHOL [Concomitant]

REACTIONS (2)
  - HAEMATOCRIT DECREASED [None]
  - HAEMOGLOBIN DECREASED [None]
